FAERS Safety Report 9120262 (Version 1)
Quarter: 2013Q1

REPORT INFORMATION
  Report Type: Spontaneous
  Country: US (occurrence: US)
  Receive Date: 20130226
  Receipt Date: 20130226
  Transmission Date: 20140127
  Serious: No
  Sender: FDA-Public Use
  Company Number: US-PFIZER INC-2013067916

PATIENT
  Sex: Female

DRUGS (2)
  1. FLAGYL [Suspect]
     Dosage: UNK
     Dates: start: 201211
  2. FLAGYL [Suspect]
     Dosage: UNK
     Dates: end: 2013

REACTIONS (1)
  - Hypoaesthesia [Not Recovered/Not Resolved]
